FAERS Safety Report 4954107-0 (Version None)
Quarter: 2006Q1

REPORT INFORMATION
  Report Type: 
  Country: None (occurrence: None)
  Receive Date: 20060327
  Receipt Date: 20060317
  Transmission Date: 20060701
  Serious: Yes (Life-Threatening)
  Sender: FDA-Public Use
  Company Number: JP-JPN-A200600998

PATIENT
  Age: 1 Year
  Sex: Female
  Weight: 9.85 kg

DRUGS (16)
  1. ALKERAN [Suspect]
     Indication: STEM CELL TRANSPLANT
     Route: 042
     Dates: start: 20040514, end: 20040515
  2. ALKERAN [Suspect]
     Route: 042
     Dates: start: 20040521, end: 20040522
  3. THIOTEPA [Suspect]
     Indication: STEM CELL TRANSPLANT
     Dates: start: 20040514, end: 20040515
  4. THIOTEPA [Suspect]
     Dates: start: 20040521, end: 20040522
  5. GRAN [Concomitant]
     Dates: start: 20040526, end: 20040604
  6. PHENOBARBITAL TAB [Concomitant]
     Route: 048
     Dates: start: 20040513
  7. ZOVIRAX [Concomitant]
     Route: 048
     Dates: start: 20040518, end: 20040724
  8. KYTRIL [Concomitant]
     Route: 042
     Dates: start: 20040514, end: 20040523
  9. BAKTAR [Concomitant]
     Route: 048
     Dates: start: 20040513
  10. PANSPORIN [Concomitant]
     Dates: start: 20040520, end: 20040525
  11. PANSPORIN [Concomitant]
     Dates: start: 20040624, end: 20040627
  12. MAXIPIME [Concomitant]
     Route: 042
     Dates: start: 20040525, end: 20040528
  13. DIFLUCAN [Concomitant]
     Route: 042
     Dates: start: 20040527
  14. CARBENIN [Concomitant]
     Route: 042
     Dates: start: 20040528, end: 20040607
  15. MINOCYCLINE HCL [Concomitant]
     Route: 042
     Dates: start: 20040528, end: 20040604
  16. VICCLOX [Concomitant]
     Route: 042
     Dates: start: 20040606, end: 20040611

REACTIONS (1)
  - SEPSIS [None]
